FAERS Safety Report 16315089 (Version 5)
Quarter: 2019Q4

REPORT INFORMATION
  Report Type: Report from Study
  Country: US (occurrence: US)
  Receive Date: 20190515
  Receipt Date: 20191002
  Transmission Date: 20200122
  Serious: Yes (Hospitalization, Other)
  Sender: FDA-Public Use
  Company Number: US-GILEAD-2019-0407301

PATIENT
  Age: 61 Year
  Sex: Male
  Weight: 140.59 kg

DRUGS (16)
  1. VALACYCLOVIR HCL [Concomitant]
     Active Substance: VALACYCLOVIR HYDROCHLORIDE
  2. FLUTICASONE. [Suspect]
     Active Substance: FLUTICASONE
     Indication: COUGH
     Dosage: UNK
     Route: 065
     Dates: start: 20190507
  3. VITAMINS NOS [Concomitant]
     Active Substance: VITAMINS
  4. AMLODIPINE [Concomitant]
     Active Substance: AMLODIPINE BESYLATE
  5. WELCHOL [Concomitant]
     Active Substance: COLESEVELAM HYDROCHLORIDE
  6. COENZYME Q10 [Concomitant]
     Active Substance: UBIDECARENONE
  7. GABAPENTIN. [Concomitant]
     Active Substance: GABAPENTIN
  8. CARVEDILOL. [Concomitant]
     Active Substance: CARVEDILOL
  9. ANORO ELLIPTA [Suspect]
     Active Substance: UMECLIDINIUM BROMIDE\VILANTEROL TRIFENATATE
     Indication: COUGH
     Dosage: UNK
     Route: 065
     Dates: start: 20190507
  10. MUCINEX [Suspect]
     Active Substance: GUAIFENESIN
     Indication: COUGH
     Dosage: UNK, BID
     Route: 065
     Dates: start: 20190507, end: 20190709
  11. ATORVASTATIN [Concomitant]
     Active Substance: ATORVASTATIN
  12. JANUVIA [Concomitant]
     Active Substance: SITAGLIPTIN PHOSPHATE
  13. METFORMIN [Concomitant]
     Active Substance: METFORMIN HYDROCHLORIDE
  14. SINUS RINSE [Suspect]
     Active Substance: SODIUM BICARBONATE\SODIUM CHLORIDE
     Indication: COUGH
     Dosage: UNK
     Route: 065
     Dates: start: 20190507
  15. LOSARTAN. [Concomitant]
     Active Substance: LOSARTAN
  16. AXICABTAGENE CILOLEUCEL [Suspect]
     Active Substance: AXICABTAGENE CILOLEUCEL
     Indication: DIFFUSE LARGE B-CELL LYMPHOMA
     Dosage: UNK
     Route: 042
     Dates: start: 20181120, end: 20181120

REACTIONS (11)
  - Seizure [Unknown]
  - CAR T-cell-related encephalopathy syndrome [Unknown]
  - Rhinovirus infection [Unknown]
  - Ear congestion [Not Recovered/Not Resolved]
  - Memory impairment [Unknown]
  - Cytokine release syndrome [Unknown]
  - Cough [Not Recovered/Not Resolved]
  - White blood cell count decreased [Unknown]
  - Nasal congestion [Not Recovered/Not Resolved]
  - Platelet count decreased [Not Recovered/Not Resolved]
  - Unevaluable event [Not Recovered/Not Resolved]

NARRATIVE: CASE EVENT DATE: 20181124
